FAERS Safety Report 5842128-5 (Version None)
Quarter: 2008Q3

REPORT INFORMATION
  Report Type: 
  Country: None (occurrence: None)
  Receive Date: 20080731
  Receipt Date: 20080618
  Transmission Date: 20090109
  Serious: No
  Sender: FDA-Public Use
  Company Number: US200806004370

PATIENT
  Age: 75 Year
  Sex: Female

DRUGS (5)
  1. BYETTA [Suspect]
     Indication: TYPE 2 DIABETES MELLITUS
     Dosage: 5 UG, 2/D, SUBCUTANEOUS
     Route: 058
     Dates: start: 20080614
  2. GLUCOPHAGE /USA/ (METFORMIN HYDROCHLORIDE) [Concomitant]
  3. TOLAZAMIDE (TOLAZAMIDE) [Concomitant]
  4. NOVOLIN N [Concomitant]
  5. NPH INSULIN (INSULIN INJECTION, ISOPHANE) [Concomitant]

REACTIONS (5)
  - ANOREXIA [None]
  - BLOOD GLUCOSE INCREASED [None]
  - DIARRHOEA [None]
  - NAUSEA [None]
  - VOMITING [None]
